FAERS Safety Report 4723315-6 (Version None)
Quarter: 2005Q3

REPORT INFORMATION
  Report Type: 
  Country: None (occurrence: None)
  Receive Date: 20050719
  Receipt Date: 20041110
  Transmission Date: 20060218
  Serious: Yes (Hospitalization, Other)
  Sender: FDA-Public Use
  Company Number: 207705

PATIENT
  Age: 45 Year
  Sex: Female
  Weight: 36.2878 kg

DRUGS (6)
  1. AVONEX [Suspect]
     Indication: MULTIPLE SCLEROSIS
     Dosage: 30 UG; QW; IM
     Route: 030
     Dates: start: 19980701
  2. AVONEX [Suspect]
     Indication: MULTIPLE SCLEROSIS
     Dosage: 30 UG; QW; IM
     Route: 030
  3. AMITRIPTYLINE HCL [Concomitant]
  4. DETROL [Concomitant]
  5. SYNTHROID [Concomitant]
  6. BACLOFEN [Concomitant]

REACTIONS (2)
  - AMNESIA [None]
  - CONVULSION [None]
